FAERS Safety Report 8506632-3 (Version None)
Quarter: 2012Q3

REPORT INFORMATION
  Report Type: 
  Country: None (occurrence: None)
  Receive Date: 20120712
  Receipt Date: 20120704
  Transmission Date: 20120928
  Serious: Yes (Other)
  Sender: FDA-Public Use
  Company Number: ES-ABBOTT-12P-144-0952621-00

PATIENT
  Age: 65 Year
  Sex: Female

DRUGS (5)
  1. BROMAZEPAM [Concomitant]
     Indication: PRODUCT USED FOR UNKNOWN INDICATION
  2. OMEPRAZOLE [Concomitant]
     Indication: PRODUCT USED FOR UNKNOWN INDICATION
  3. KLACID 500 TABLETS [Suspect]
     Indication: PRODUCT USED FOR UNKNOWN INDICATION
     Route: 048
     Dates: start: 20111101
  4. ACETAMINOPHEN [Concomitant]
     Indication: PRODUCT USED FOR UNKNOWN INDICATION
  5. PANKREOFLAT [Concomitant]
     Indication: PRODUCT USED FOR UNKNOWN INDICATION

REACTIONS (9)
  - HYPERTRANSAMINASAEMIA [None]
  - ABDOMINAL PAIN [None]
  - MYALGIA [None]
  - DEVICE FAILURE [None]
  - BREAST INDURATION [None]
  - DEVICE RELATED INFECTION [None]
  - BODY TEMPERATURE INCREASED [None]
  - MALAISE [None]
  - HEPATITIS TOXIC [None]
